FAERS Safety Report 7860913-5 (Version None)
Quarter: 2011Q4

REPORT INFORMATION
  Report Type: 
  Country: None (occurrence: None)
  Receive Date: 20111027
  Receipt Date: 20111021
  Transmission Date: 20120403
  Serious: Yes (Other)
  Sender: FDA-Public Use
  Company Number: FR-MERCK-1110FRA00096

PATIENT
  Age: 13 Year
  Sex: Male

DRUGS (3)
  1. MIZOLLEN [Concomitant]
     Indication: HYPERSENSITIVITY
     Route: 048
  2. MONTELUKAST SODIUM [Suspect]
     Indication: ASTHMA
     Route: 048
     Dates: start: 20060501, end: 20101101
  3. SINGULAIR [Suspect]
     Indication: ASTHMA
     Route: 048
     Dates: start: 20101101, end: 20110701

REACTIONS (3)
  - ANXIETY [None]
  - ABNORMAL BEHAVIOUR [None]
  - AGGRESSION [None]
